FAERS Safety Report 22269085 (Version 1)
Quarter: 2023Q2

REPORT INFORMATION
  Report Type: Spontaneous
  Country: CN (occurrence: CN)
  Receive Date: 20230501
  Receipt Date: 20230501
  Transmission Date: 20230721
  Serious: Yes (Hospitalization, Other)
  Sender: FDA-Public Use
  Company Number: CN-SANOFI-01583202

PATIENT
  Age: 83 Year
  Sex: Female

DRUGS (1)
  1. ZOLPIDEM TARTRATE [Suspect]
     Active Substance: ZOLPIDEM TARTRATE
     Indication: Insomnia
     Dosage: 1 DF
     Route: 048

REACTIONS (4)
  - Spinal compression fracture [Unknown]
  - Back pain [Unknown]
  - Vertigo positional [Unknown]
  - Fall [Unknown]
